FAERS Safety Report 19572820 (Version 1)
Quarter: 2021Q3

REPORT INFORMATION
  Report Type: Spontaneous
  Country: GB (occurrence: GB)
  Receive Date: 20210716
  Receipt Date: 20210716
  Transmission Date: 20211014
  Serious: Yes (Life-Threatening, Hospitalization, Disabling, Other)
  Sender: FDA-Public Use
  Company Number: GB-TEVA-2021-GB-1932174

PATIENT
  Age: 54 Year
  Sex: Male
  Weight: 90.71 kg

DRUGS (10)
  1. AZATHIOPRINE. [Concomitant]
     Active Substance: AZATHIOPRINE
     Dosage: 4 DOSAGE FORMS DAILY; EVERY DAY, STRENGTH : 50 MG
     Dates: start: 20180416
  2. FEXOFENADINE [Suspect]
     Active Substance: FEXOFENADINE HYDROCHLORIDE
     Dosage: STRENGTH : 180 MG
     Route: 065
     Dates: start: 20180530, end: 20180610
  3. BETNOVATE [Concomitant]
     Active Substance: BETAMETHASONE
     Dosage: APPLY A THIN LAYER DAILY FOR UP TO 7 DAYS, STRENGTH : 0.1 PERCENT, SCALP APPLICATION AND CREAM
     Dates: start: 20180524
  4. PRIADEL [Concomitant]
     Active Substance: LITHIUM
     Dosage: 3 DOSAGE FORMS DAILY; EVERY NIGHT, STRENGTH : 400 MG
     Dates: start: 20180416
  5. UREA. [Concomitant]
     Active Substance: UREA
     Indication: PRURITUS
     Dosage: USE WHEN REQUIRED FOR DRY ITCHY SKIN
     Dates: start: 20180530
  6. BETNOVATE [Concomitant]
     Active Substance: BETAMETHASONE
     Dosage: AS REQ, STRENGTH : 0.1 PERCENT, SCALP APPLICATION AND CREAM
     Dates: start: 20180503
  7. AZATHIOPRINE. [Concomitant]
     Active Substance: AZATHIOPRINE
     Dosage: 4 DOSAGE FORMS DAILY; EVERY DAY, STRENGTH : 50 MG
     Dates: start: 20180611
  8. SERTRALINE [Concomitant]
     Active Substance: SERTRALINE HYDROCHLORIDE
     Dosage: 1 EVERY MORNING IN ADDITION TO 100MG TABLET, STRENGTH : 50 MG, 100 MG
     Dates: start: 20180611
  9. PRIADEL [Concomitant]
     Active Substance: LITHIUM
     Dosage: 3 DOSAGE FORMS DAILY; EVERY NIGHT NOTES FOR PATIENT:, STRENGTH : 400 MG
     Dates: start: 20180611
  10. SERTRALINE [Concomitant]
     Active Substance: SERTRALINE HYDROCHLORIDE
     Dosage: 1 DOSAGE FORMS DAILY; STRENGTH : 50 MG, 100 MG
     Dates: start: 20180611

REACTIONS (1)
  - Oedema [Recovering/Resolving]

NARRATIVE: CASE EVENT DATE: 20180601
